FAERS Safety Report 10191172 (Version 1)
Quarter: 2014Q2

REPORT INFORMATION
  Report Type: Spontaneous
  Country: US (occurrence: US)
  Receive Date: 20140523
  Receipt Date: 20140523
  Transmission Date: 20141212
  Serious: No
  Sender: FDA-Public Use
  Company Number: US-BAUSCH-BL-2013-004617

PATIENT
  Age: 84 Year
  Sex: Female
  Weight: 59.02 kg

DRUGS (3)
  1. IPRATROPIUM BROMIDE NASAL SOLUTION 0.06% [Suspect]
     Indication: RHINITIS
     Dosage: 2 SPRAYS IN LEFT NOSTRIL, TWO TIMES
     Route: 045
     Dates: start: 20130808, end: 20130808
  2. IPRATROPIUM BROMIDE NASAL SOLUTION 0.06% [Suspect]
     Dosage: 2 SPRAYS IN RIGHT NOSTRIL, TWO TIMES
     Route: 045
     Dates: start: 20130808, end: 20130808
  3. BYSTOLIC [Concomitant]

REACTIONS (2)
  - Palpitations [Recovered/Resolved]
  - Hypertension [Recovering/Resolving]
